FAERS Safety Report 9366549 (Version 2)
Quarter: 2013Q3

REPORT INFORMATION
  Report Type: Spontaneous
  Country: US (occurrence: US)
  Receive Date: 20130625
  Receipt Date: 20130827
  Transmission Date: 20140515
  Serious: Yes (Other)
  Sender: FDA-Public Use
  Company Number: US-PAR PHARMACEUTICAL, INC-2013SCPR005984

PATIENT
  Sex: 0

DRUGS (2)
  1. METOCLOPRAMIDE [Suspect]
     Indication: GASTROOESOPHAGEAL REFLUX DISEASE
     Dosage: 1 DF, TID, AC
     Route: 048
     Dates: start: 20041203, end: 20080308
  2. METOCLOPRAMIDE [Suspect]
     Indication: DYSPEPSIA

REACTIONS (8)
  - Cerebral atrophy [Unknown]
  - Hypothyroidism [Unknown]
  - Memory impairment [Unknown]
  - Neuropathy peripheral [Unknown]
  - Rash [Unknown]
  - Tardive dyskinesia [Recovering/Resolving]
  - Depression [Recovering/Resolving]
  - Tremor [Unknown]
